FAERS Safety Report 14198376 (Version 2)
Quarter: 2017Q4

REPORT INFORMATION
  Report Type: Spontaneous
  Country: AU (occurrence: AU)
  Receive Date: 20171117
  Receipt Date: 20171124
  Transmission Date: 20180321
  Serious: Yes (Hospitalization, Other)
  Sender: FDA-Public Use
  Company Number: AU-AMGEN-AUSSP2017172303

PATIENT
  Age: 64 Year
  Sex: Male
  Weight: 79.5 kg

DRUGS (2)
  1. KYPROLIS [Suspect]
     Active Substance: CARFILZOMIB
     Dosage: 56 MG/M2, 2 TIMES/WK (110 MG
     Route: 042
     Dates: start: 2017
  2. KYPROLIS [Suspect]
     Active Substance: CARFILZOMIB
     Indication: PLASMA CELL MYELOMA
     Dosage: 20 MG/M2, X2 (40 MG) INITIALLY
     Route: 042
     Dates: start: 20171010

REACTIONS (3)
  - Confusional state [Unknown]
  - General physical health deterioration [Unknown]
  - Pathological fracture [Recovered/Resolved]

NARRATIVE: CASE EVENT DATE: 20171011
